FAERS Safety Report 16322344 (Version 4)
Quarter: 2020Q4

REPORT INFORMATION
  Report Type: Spontaneous
  Country: US (occurrence: US)
  Receive Date: 20190516
  Receipt Date: 20201231
  Transmission Date: 20210113
  Serious: No
  Sender: FDA-Public Use
  Company Number: US-TAKEDA-2019TUS030188

PATIENT
  Sex: Female
  Weight: 113 kg

DRUGS (2)
  1. NINLARO [Suspect]
     Active Substance: IXAZOMIB CITRATE
     Dosage: 2.3 MILLIGRAM
     Route: 048
     Dates: start: 20190204, end: 20201228
  2. NINLARO [Suspect]
     Active Substance: IXAZOMIB CITRATE
     Indication: PLASMA CELL MYELOMA
     Dosage: 2.3 MILLIGRAM
     Route: 048
     Dates: start: 20190430

REACTIONS (6)
  - Blood immunoglobulin M increased [Unknown]
  - Blood immunoglobulin G increased [Unknown]
  - Laboratory test abnormal [Unknown]
  - Fatigue [Unknown]
  - Anaemia [Unknown]
  - Gastrooesophageal reflux disease [Unknown]
